FAERS Safety Report 6506791-8 (Version None)
Quarter: 2009Q4

REPORT INFORMATION
  Report Type: 
  Country: None (occurrence: None)
  Receive Date: 20091216
  Receipt Date: 20091204
  Transmission Date: 20100525
  Serious: Yes (Other)
  Sender: FDA-Public Use
  Company Number: 2009AC000457

PATIENT
  Sex: Female

DRUGS (51)
  1. DIGOXIN [Suspect]
     Dosage: PO
     Route: 048
     Dates: start: 20000101
  2. HYDROCODONE [Concomitant]
  3. ADVAIR DISKUS 100/50 [Concomitant]
  4. FUROSEMIDE [Concomitant]
  5. SPIRONOLACTONE [Concomitant]
  6. LISINOPRIL [Concomitant]
  7. ZOLOFT [Concomitant]
  8. COREG [Concomitant]
  9. NASONEX [Concomitant]
  10. CARISOPRODOL [Concomitant]
  11. PROTONIX [Concomitant]
  12. CAPTOPRIL [Concomitant]
  13. PAXIL [Concomitant]
  14. VICODIN [Concomitant]
  15. VALIUM [Concomitant]
  16. NEXIUM [Concomitant]
  17. ZOCOR [Concomitant]
  18. HYDROCODONE [Concomitant]
  19. CARISOPRODOL [Concomitant]
  20. ROPINIROLE [Concomitant]
  21. REQUIP [Concomitant]
  22. TEMAZEPAM [Concomitant]
  23. PROMETHAZINE [Concomitant]
  24. CODEINE [Concomitant]
  25. AMOXICILLIN [Concomitant]
  26. PRILOSEC [Concomitant]
  27. SPIRONOLACTONE [Concomitant]
  28. FUROSEMIDE [Concomitant]
  29. CYCLOBENZAPRINE [Concomitant]
  30. NASONEX [Concomitant]
  31. CLOPIDOGREL [Concomitant]
  32. SPIRIVA [Concomitant]
  33. LISINOPRIL [Concomitant]
  34. PRESTIGE SMART [Concomitant]
  35. HYDROXYZINE [Concomitant]
  36. TRAMADOL [Concomitant]
  37. PROTONIX [Concomitant]
  38. SERTRALINE HCL [Concomitant]
  39. CIMETIDINE [Concomitant]
  40. PAXIL [Concomitant]
  41. SALSALATE [Concomitant]
  42. DIAZEPAM [Concomitant]
  43. ACETAMINOPHEN [Concomitant]
  44. HYDROCODONE [Concomitant]
  45. PRILOSEC [Concomitant]
  46. NASONEX [Concomitant]
  47. PAXIL [Concomitant]
  48. SALSALATE [Concomitant]
  49. DIAZEPAM [Concomitant]
  50. TEMAZEPAM [Concomitant]
  51. CARISOPRODOL [Concomitant]

REACTIONS (9)
  - CARDIAC FAILURE CONGESTIVE [None]
  - DIZZINESS [None]
  - ECONOMIC PROBLEM [None]
  - HYPOTENSION [None]
  - INJURY [None]
  - LEFT VENTRICULAR HYPERTROPHY [None]
  - NAUSEA [None]
  - SURGERY [None]
  - VOMITING [None]
